FAERS Safety Report 17937427 (Version 2)
Quarter: 2020Q4

REPORT INFORMATION
  Report Type: Spontaneous
  Country: DE (occurrence: DE)
  Receive Date: 20200624
  Receipt Date: 20201104
  Transmission Date: 20210113
  Serious: Yes (Life-Threatening, Hospitalization, Other)
  Sender: FDA-Public Use
  Company Number: DE-009507513-2006DEU008417

PATIENT
  Age: 18 Year
  Sex: Male
  Weight: 68 kg

DRUGS (8)
  1. PROPECIA [Suspect]
     Active Substance: FINASTERIDE
     Dosage: 1 MILLIGRAM, QD
     Dates: end: 2014
  2. PROPECIA [Suspect]
     Active Substance: FINASTERIDE
     Indication: ALOPECIA
     Dosage: 1 MILLIGRAM, QD
     Dates: start: 200610, end: 201211
  3. GABAPENIN [Concomitant]
     Active Substance: GABAPENTIN
     Dosage: 500 MILLIGRAM, BID
  4. AVAMYS [Suspect]
     Active Substance: FLUTICASONE FUROATE
     Dosage: UNK
     Dates: start: 20090610
  5. MINERALS (UNSPECIFIED) [Concomitant]
     Dosage: UNK
  6. DEKRISTOL [Concomitant]
     Active Substance: CHOLECALCIFEROL
     Dosage: UNK
  7. LOCABIOSOL [Suspect]
     Active Substance: FUSAFUNGINE
  8. FLUOXETINE [Suspect]
     Active Substance: FLUOXETINE HYDROCHLORIDE

REACTIONS (34)
  - Decreased appetite [Unknown]
  - Dyspnoea [Unknown]
  - Emotional disorder [Unknown]
  - Tension [Unknown]
  - Terminal ileitis [Unknown]
  - Palpitations [Unknown]
  - Poor quality sleep [Unknown]
  - Depressed mood [Unknown]
  - Skin discolouration [Unknown]
  - Violence-related symptom [Unknown]
  - Fear of crowded places [Unknown]
  - Disturbance in social behaviour [Unknown]
  - Proctitis [Unknown]
  - Memory impairment [Unknown]
  - Agitation [Unknown]
  - Restlessness [Unknown]
  - Muscle twitching [Unknown]
  - Neck pain [Unknown]
  - Crohn^s disease [Unknown]
  - Initial insomnia [Unknown]
  - Cognitive disorder [Unknown]
  - Negative thoughts [Unknown]
  - Myalgia [Unknown]
  - Paraesthesia [Unknown]
  - Libido decreased [Unknown]
  - Disturbance in attention [Unknown]
  - Pyrexia [Unknown]
  - Muscle spasms [Unknown]
  - Anger [Unknown]
  - Post 5-alpha-reductase inhibitor syndrome [Unknown]
  - Psychiatric symptom [Unknown]
  - Fatigue [Unknown]
  - Nervousness [Unknown]
  - Chelation therapy [Unknown]

NARRATIVE: CASE EVENT DATE: 201401
